FAERS Safety Report 22662890 (Version 4)
Quarter: 2024Q1

REPORT INFORMATION
  Report Type: Spontaneous
  Country: US (occurrence: US)
  Receive Date: 20230702
  Receipt Date: 20240327
  Transmission Date: 20240409
  Serious: Yes (Other)
  Sender: FDA-Public Use
  Company Number: US-BRISTOL-MYERS SQUIBB COMPANY-2023-092050

PATIENT
  Age: 79 Year
  Sex: Female

DRUGS (2)
  1. POMALYST [Suspect]
     Active Substance: POMALIDOMIDE
     Indication: Plasma cell myeloma in remission
     Dosage: TAKE 1 CAPSULE BY MOUTH EVERY DAY. TAKE 1 CAPSULE BY MOUTH EVERY DAY FOR 21 DAYS, THEN HOLD FOR 7 DA
     Route: 048
     Dates: start: 20200417
  2. POMALYST [Suspect]
     Active Substance: POMALIDOMIDE
     Indication: Colon cancer
     Dosage: 2 MG FOR 21 DAYS WITH 14 DAYS OFF
     Route: 048

REACTIONS (2)
  - Off label use [Unknown]
  - Full blood count decreased [Recovering/Resolving]
